FAERS Safety Report 22629065 (Version 1)
Quarter: 2023Q2

REPORT INFORMATION
  Report Type: Spontaneous
  Country: FR (occurrence: FR)
  Receive Date: 20230622
  Receipt Date: 20230622
  Transmission Date: 20230722
  Serious: Yes (Other)
  Sender: FDA-Public Use
  Company Number: None

PATIENT

DRUGS (2)
  1. LAMICTAL [Interacting]
     Active Substance: LAMOTRIGINE
     Indication: Epilepsy
     Dosage: UNK
     Route: 048
     Dates: start: 2017
  2. POLYETHYLENE GLYCOL 3350 [Interacting]
     Active Substance: POLYETHYLENE GLYCOL 3350
     Indication: Urinary tract disorder
     Dosage: 1 DF, QD
     Route: 048
     Dates: start: 20210502, end: 20210605

REACTIONS (3)
  - Change in seizure presentation [Not Recovered/Not Resolved]
  - Condition aggravated [Not Recovered/Not Resolved]
  - Inhibitory drug interaction [Unknown]

NARRATIVE: CASE EVENT DATE: 20210605
